FAERS Safety Report 8433248-X (Version None)
Quarter: 2012Q2

REPORT INFORMATION
  Report Type: 
  Country: None (occurrence: None)
  Receive Date: 20120323
  Receipt Date: 20111003
  Transmission Date: 20120825
  Serious: Yes (Other)
  Sender: FDA-Public Use
  Company Number: 163-21880-11070658

PATIENT
  Age: 55 Year
  Sex: Female

DRUGS (10)
  1. NEUPOGEN [Concomitant]
  2. ERRIN (NORETHISTERONE) [Concomitant]
  3. LENALIDOMIDE [Suspect]
     Indication: 5Q MINUS SYNDROME
     Dosage: 10 MG, DAILY X 28 DAYS, PO
     Route: 048
     Dates: start: 20110617, end: 20110809
  4. PROTONIX [Concomitant]
  5. VITAMIN B12 [Concomitant]
  6. MULTI-VITAMINS [Concomitant]
  7. AMLODIPINE BESYLATE [Concomitant]
  8. ARANESP (ALBUMIN FREE) (ALL OTHER THERAPEUTIC PRODUCTS) [Concomitant]
  9. NEUMEGA [Concomitant]
  10. AMOXICILLIN [Concomitant]

REACTIONS (1)
  - PLATELET COUNT DECREASED [None]
